FAERS Safety Report 6500981-6 (Version None)
Quarter: 2009Q4

REPORT INFORMATION
  Report Type: 
  Country: None (occurrence: None)
  Receive Date: 20091216
  Receipt Date: 20090515
  Transmission Date: 20100525
  Serious: No
  Sender: FDA-Public Use
  Company Number: A0784508A

PATIENT
  Age: 50 Year
  Sex: Male

DRUGS (2)
  1. COMMIT [Suspect]
  2. COMMIT [Suspect]

REACTIONS (3)
  - ORAL DISCOMFORT [None]
  - SPEECH DISORDER [None]
  - TONGUE BLISTERING [None]
